FAERS Safety Report 14814486 (Version 1)
Quarter: 2018Q2

REPORT INFORMATION
  Report Type: Spontaneous
  Country: DE (occurrence: DE)
  Receive Date: 20180426
  Receipt Date: 20180426
  Transmission Date: 20180711
  Serious: Yes (Hospitalization, Other)
  Sender: FDA-Public Use
  Company Number: DE-DRREDDYS-GER/GER/18/0097944

PATIENT
  Age: 75 Year
  Sex: Female

DRUGS (9)
  1. SIMVABETA 20 MG FILMTABLETTEN [Suspect]
     Active Substance: SIMVASTATIN
     Indication: HYPERCHOLESTEROLAEMIA
     Dosage: 0-0-1
     Route: 048
     Dates: start: 201001, end: 20180124
  2. PANTOZOL 40 MG [Concomitant]
     Indication: PRODUCT USED FOR UNKNOWN INDICATION
     Dosage: APPR. FOR 8 YEARS
  3. INDOMET-RATIO 100 MG SUPP [Concomitant]
     Dosage: APPR. FOR 3 YEARS
  4. TAMBOCOR 100 MG [Concomitant]
     Indication: PRODUCT USED FOR UNKNOWN INDICATION
     Dosage: APPR. FOR 3 YEARS
  5. L-THYROXIN 75 MCG [Concomitant]
     Indication: PRODUCT USED FOR UNKNOWN INDICATION
     Dosage: APPR. FOR 15 YEARS
  6. BISOHEXAL 2,5 MG [Concomitant]
     Indication: PRODUCT USED FOR UNKNOWN INDICATION
     Dosage: APPR. FOR 3 YEARS
  7. ELIQUIS 2,5 MG [Concomitant]
     Indication: PRODUCT USED FOR UNKNOWN INDICATION
     Dosage: APPR. FOR 3 YEARS
  8. LORZAAR PLUS 50/12,5 MG [Concomitant]
     Indication: PRODUCT USED FOR UNKNOWN INDICATION
     Dosage: APPR. FOR 20 YEARS
  9. INDOMET-RATIO 100 MG SUPP [Concomitant]
     Indication: PRODUCT USED FOR UNKNOWN INDICATION

REACTIONS (8)
  - Biliary colic [Recovered/Resolved]
  - Cholecystitis [Recovered/Resolved]
  - Rash pruritic [Recovered/Resolved]
  - Urine abnormality [Recovered/Resolved]
  - Faeces discoloured [Recovered/Resolved]
  - Cholelithiasis [Recovered/Resolved]
  - Drug interaction [Recovered/Resolved]
  - Jaundice [Recovered/Resolved]

NARRATIVE: CASE EVENT DATE: 201707
